FAERS Safety Report 17572534 (Version 2)
Quarter: 2020Q1

REPORT INFORMATION
  Report Type: Spontaneous
  Country: CN (occurrence: CN)
  Receive Date: 20200323
  Receipt Date: 20200330
  Transmission Date: 20200409
  Serious: No
  Sender: FDA-Public Use
  Company Number: CN-009507513-2003CHN007168

PATIENT
  Age: 64 Year
  Sex: Female
  Weight: 45 kg

DRUGS (2)
  1. TIENAM [Suspect]
     Active Substance: CILASTATIN SODIUM\IMIPENEM
     Indication: FEBRILE INFECTION
     Dosage: 1 GRAM, Q8H
     Route: 041
     Dates: start: 20200125, end: 20200127
  2. SODIUM CHLORIDE. [Concomitant]
     Active Substance: SODIUM CHLORIDE
     Indication: FEBRILE INFECTION
     Dosage: 100 MILLILITER, Q8H
     Route: 041
     Dates: start: 20200125, end: 20200127

REACTIONS (2)
  - Mental disorder [Recovering/Resolving]
  - Disorganised speech [Recovering/Resolving]

NARRATIVE: CASE EVENT DATE: 20200127
